FAERS Safety Report 8083633-3 (Version None)
Quarter: 2012Q1

REPORT INFORMATION
  Report Type: 
  Country: None (occurrence: None)
  Receive Date: 20120127
  Receipt Date: 20110310
  Transmission Date: 20120608
  Serious: No
  Sender: FDA-Public Use
  Company Number: US-ABBOTT-11P-163-0710777-00

PATIENT
  Age: 29 Year
  Sex: Male

DRUGS (6)
  1. HUMIRA [Suspect]
     Indication: CROHN'S DISEASE
     Dosage: 160 MG LOADING DOSE
     Dates: start: 20110310, end: 20110310
  2. HUMIRA [Suspect]
  3. HUMIRA [Suspect]
     Dosage: DAY 29
  4. PENTASA [Concomitant]
     Indication: CROHN'S DISEASE
  5. HUMIRA [Suspect]
     Dosage: 80 MG LOADING DOSE DAY 15
  6. DICYCLOMINE [Concomitant]
     Indication: PRODUCT USED FOR UNKNOWN INDICATION

REACTIONS (1)
  - INJECTION SITE PAIN [None]
